FAERS Safety Report 6267128-5 (Version None)
Quarter: 2009Q3

REPORT INFORMATION
  Report Type: 
  Country: None (occurrence: None)
  Receive Date: 20090714
  Receipt Date: 20090702
  Transmission Date: 20100115
  Serious: Yes (Other)
  Sender: FDA-Public Use
  Company Number: US-PFIZER INC-2005098116

PATIENT
  Sex: Female
  Weight: 63.4 kg

DRUGS (5)
  1. PROVERA [Suspect]
     Indication: HORMONE REPLACEMENT THERAPY
     Route: 048
     Dates: start: 19930101, end: 19960101
  2. PREMARIN [Suspect]
     Indication: HORMONE REPLACEMENT THERAPY
     Dates: start: 19930101, end: 19970101
  3. PREMPRO [Suspect]
     Indication: HORMONE REPLACEMENT THERAPY
     Dates: start: 19960709, end: 20000612
  4. PREFEST [Suspect]
     Indication: HORMONE REPLACEMENT THERAPY
     Dates: start: 20000601, end: 20020601
  5. COZAAR [Concomitant]
     Indication: HYPERTENSION
     Dates: start: 19940601, end: 20030101

REACTIONS (1)
  - OVARIAN CANCER [None]
